FAERS Safety Report 20683214 (Version 1)
Quarter: 2022Q2

REPORT INFORMATION
  Report Type: Spontaneous
  Country: US (occurrence: US)
  Receive Date: 20220407
  Receipt Date: 20220407
  Transmission Date: 20220721
  Serious: Yes (Hospitalization)
  Sender: FDA-Public Use
  Company Number: US-HORIZON THERAPEUTICS-HZN-2022-002501

PATIENT

DRUGS (12)
  1. RAYOS [Suspect]
     Active Substance: PREDNISONE
     Indication: Chronic granulomatous disease
     Dosage: 10 MG, DAILY
     Route: 048
  2. INFLIXIMAB [Suspect]
     Active Substance: INFLIXIMAB
     Indication: Inflammatory bowel disease
     Dosage: 5 MG/KG/DOSE (FIRST INFUSION)
     Route: 065
  3. INFLIXIMAB [Suspect]
     Active Substance: INFLIXIMAB
     Dosage: SECOND INFUSION, TWO WEEKS
  4. MEROPENEM [Concomitant]
     Active Substance: MEROPENEM
  5. POSACONAZOLE [Concomitant]
     Active Substance: POSACONAZOLE
  6. ACYCLOVIR [Concomitant]
     Active Substance: ACYCLOVIR
     Indication: Herpes simplex
  7. VANCOMYCIN [Concomitant]
     Active Substance: VANCOMYCIN
  8. AMPHOTERICIN B [Concomitant]
     Active Substance: AMPHOTERICIN B
  9. MICAFUNGIN [Concomitant]
     Active Substance: MICAFUNGIN
  10. SULFAMETHOXAZOLE\TRIMETHOPRIM [Concomitant]
     Active Substance: SULFAMETHOXAZOLE\TRIMETHOPRIM
  11. ITRACONAZOLE [Concomitant]
     Active Substance: ITRACONAZOLE
  12. INTERFERON GAMMA [Concomitant]
     Active Substance: INTERFERON GAMMA

REACTIONS (3)
  - Lymphadenitis [Recovered/Resolved]
  - Colitis [Unknown]
  - Candida infection [Unknown]
